FAERS Safety Report 5023025-4 (Version None)
Quarter: 2006Q2

REPORT INFORMATION
  Report Type: 
  Country: None (occurrence: None)
  Receive Date: 20060426
  Receipt Date: 20060302
  Transmission Date: 20061013
  Serious: Yes (Hospitalization)
  Sender: FDA-Public Use
  Company Number: 2006031033

PATIENT
  Age: 48 Year
  Sex: Female
  Weight: 89.3586 kg

DRUGS (15)
  1. LYRICA [Suspect]
     Indication: BACK PAIN
     Dosage: (2 IN 1 D)
     Dates: start: 20060301
  2. LOVENOX [Concomitant]
  3. SKELAXIN [Concomitant]
  4. NEURONTIN [Concomitant]
  5. EFFEXOR [Concomitant]
  6. BACLOFEN [Concomitant]
  7. FLOMAX [Concomitant]
  8. DARVOCET [Concomitant]
  9. DURAGESIC-100 [Concomitant]
  10. KLONOPIN [Concomitant]
  11. TEMAZEPAM [Concomitant]
  12. DUCOLAX (BISACODYL) [Concomitant]
  13. SENOKOT [Concomitant]
  14. LIDOCAINE [Concomitant]
  15. DILAUDID [Concomitant]

REACTIONS (5)
  - CHEST PAIN [None]
  - DIZZINESS [None]
  - DRY MOUTH [None]
  - SOMNOLENCE [None]
  - SWELLING [None]
